FAERS Safety Report 5984717-3 (Version None)
Quarter: 2008Q4

REPORT INFORMATION
  Report Type: 
  Country: None (occurrence: None)
  Receive Date: 20081202
  Receipt Date: 20081117
  Transmission Date: 20090506
  Serious: Yes (Hospitalization)
  Sender: FDA-Public Use
  Company Number: BI-S-20080026

PATIENT
  Sex: Female

DRUGS (8)
  1. OESTROGEL (GEL) [Suspect]
     Indication: HIRSUTISM
     Dosage: 1 DOSAGE FORMS, 1 IN 1 D, TRANSCUTANEOUS
     Route: 003
  2. OESTROGEL (GEL) [Suspect]
     Indication: OBESITY
     Dosage: 1 DOSAGE FORMS, 1 IN 1 D, TRANSCUTANEOUS
     Route: 003
  3. OESTRODOSE(GEL) [Suspect]
     Indication: HIRSUTISM
     Dosage: TOPICAL
     Route: 061
     Dates: end: 20070306
  4. OESTRODOSE(GEL) [Suspect]
     Indication: OBESITY
     Dosage: TOPICAL
     Route: 061
     Dates: end: 20070306
  5. ANDROCUR [Suspect]
     Indication: HIRSUTISM
     Dosage: 100 MG, 1 IN 1 D, ORAL
     Route: 048
     Dates: start: 19920601, end: 20070130
  6. ANDROCUR [Suspect]
     Indication: OBESITY
     Dosage: 100 MG, 1 IN 1 D, ORAL
     Route: 048
     Dates: start: 19920601, end: 20070130
  7. ALDACTONE [Concomitant]
  8. GLUCOPHAGE(CAPSULES) [Concomitant]

REACTIONS (3)
  - DRUG EXPOSURE BEFORE PREGNANCY [None]
  - MENINGIOMA [None]
  - PREGNANCY [None]
